FAERS Safety Report 4751629-2 (Version None)
Quarter: 2005Q3

REPORT INFORMATION
  Report Type: 
  Country: None (occurrence: None)
  Receive Date: 20050823
  Receipt Date: 20050823
  Transmission Date: 20060218
  Serious: Yes (Death)
  Sender: FDA-Public Use
  Company Number: None

PATIENT
  Age: 45 Year
  Sex: Female
  Weight: 96.1626 kg

DRUGS (12)
  1. AVASTIN [Suspect]
     Indication: COLON CANCER METASTATIC
     Dosage: 5MG/KG EVERY 14DAYS, IV
     Route: 042
     Dates: start: 20050412, end: 20050810
  2. AVASTIN [Suspect]
  3. FOLFOX [Concomitant]
  4. ATENOLOL [Concomitant]
  5. NEURONTIN [Concomitant]
  6. HYDROCHLOROTHIAZIDE [Concomitant]
  7. VICODIN [Concomitant]
  8. ZOFRAN [Concomitant]
  9. VANCOMYCIN [Concomitant]
  10. CAMPAZINE [Concomitant]
  11. EMEND [Concomitant]
  12. MOTRIN [Concomitant]

REACTIONS (2)
  - RECTAL HAEMORRHAGE [None]
  - SEPSIS [None]
